FAERS Safety Report 7180238-3 (Version None)
Quarter: 2010Q4

REPORT INFORMATION
  Report Type: 
  Country: None (occurrence: None)
  Receive Date: 20101221
  Receipt Date: 20101209
  Transmission Date: 20110411
  Serious: Yes (Other)
  Sender: FDA-Public Use
  Company Number: US-MYLANLABS-2010S1022526

PATIENT
  Age: 52 Year
  Sex: Female

DRUGS (5)
  1. ESTRADIOL TRANSDERMAL SYSTEM, USP [Suspect]
     Indication: HORMONE REPLACEMENT THERAPY
     Dosage: CHANGED QW
     Route: 062
     Dates: start: 20101101
  2. LIBRIUM [Concomitant]
     Indication: MEMORY IMPAIRMENT
  3. AMBIEN [Concomitant]
  4. WELLBUTRIN [Concomitant]
  5. CHOLESTEROL MEDICATION [Concomitant]

REACTIONS (8)
  - ANXIETY [None]
  - ASTHENIA [None]
  - DISTURBANCE IN ATTENTION [None]
  - DRUG INEFFECTIVE [None]
  - HORMONE LEVEL ABNORMAL [None]
  - MEMORY IMPAIRMENT [None]
  - MOOD SWINGS [None]
  - WRONG TECHNIQUE IN DRUG USAGE PROCESS [None]
